FAERS Safety Report 13973748 (Version 2)
Quarter: 2017Q4

REPORT INFORMATION
  Report Type: Other
  Country: RU (occurrence: RU)
  Receive Date: 20170914
  Receipt Date: 20171018
  Transmission Date: 20180321
  Serious: Yes (Other)
  Sender: FDA-Public Use
  Company Number: RU-EMD SERONO-8182436

PATIENT
  Sex: Female

DRUGS (4)
  1. GONAL-F [Suspect]
     Active Substance: FOLLITROPIN
     Indication: OVULATION INDUCTION
     Route: 058
  2. OVITRELLE [Suspect]
     Active Substance: CHORIOGONADOTROPIN ALFA
     Indication: OVULATION INDUCTION
     Route: 058
  3. INOFERT [Concomitant]
     Indication: OVULATION INDUCTION
     Dosage: INOSIT 1000 MG, FOLIC ACID 100 MCG
  4. CETROTIDE [Suspect]
     Active Substance: CETRORELIX ACETATE
     Indication: OVULATION INDUCTION
     Route: 058

REACTIONS (1)
  - Abortion spontaneous [Recovered/Resolved]
